FAERS Safety Report 8774406 (Version 1)
Quarter: 2012Q4

REPORT INFORMATION
  Report Type: 
  Country: US (occurrence: US)
  Receive Date: 20120907
  Receipt Date: 20120907
  Transmission Date: 20130627
  Serious: No
  Sender: FDA-Public Use
  Company Number: US-009507513-1208USA012274

PATIENT

DRUGS (8)
  1. VYTORIN [Suspect]
     Indication: BLOOD CHOLESTEROL INCREASED
     Dosage: UNK UNK, qid
     Route: 048
  2. AZITHROMYCIN [Interacting]
     Indication: TOOTH INFECTION
     Dosage: 2 DF, qd
     Route: 048
  3. AZITHROMYCIN [Interacting]
     Dosage: 1 DF, qd
     Route: 048
  4. ATENOLOL [Concomitant]
  5. TRIAMTERENE [Concomitant]
  6. LISINOPRIL [Concomitant]
  7. EFFEXOR [Concomitant]
  8. OXYCODONE [Concomitant]
     Indication: SPINAL COMPRESSION FRACTURE

REACTIONS (3)
  - Drug interaction [Unknown]
  - Arthralgia [Unknown]
  - Myalgia [Unknown]
